FAERS Safety Report 7867085-1 (Version None)
Quarter: 2011Q4

REPORT INFORMATION
  Report Type: 
  Country: None (occurrence: None)
  Receive Date: 20111028
  Receipt Date: 20111017
  Transmission Date: 20120403
  Serious: Yes (Death, Hospitalization)
  Sender: FDA-Public Use
  Company Number: TR-BRISTOL-MYERS SQUIBB COMPANY-16167322

PATIENT
  Age: 45 Year
  Sex: Male

DRUGS (3)
  1. CISPLATIN [Suspect]
     Indication: GASTRIC CANCER
     Dosage: ON DAY 1. 3 WEEK CYCLE.
     Route: 042
  2. FLUOROURACIL [Concomitant]
  3. CAPECITABINE [Suspect]
     Indication: GASTRIC CANCER
     Dosage: ON DAYS 1-14. 3 WEEK CYCLE.
     Route: 048

REACTIONS (3)
  - COLITIS ISCHAEMIC [None]
  - THROMBOSIS [None]
  - CARDIAC ARREST [None]
